FAERS Safety Report 9954611 (Version 1)
Quarter: 2014Q1

REPORT INFORMATION
  Report Type: Report from Study
  Country: US (occurrence: US)
  Receive Date: 20140304
  Receipt Date: 20140304
  Transmission Date: 20141002
  Serious: No
  Sender: FDA-Public Use
  Company Number: US-ABBVIE-13P-163-1083465-00

PATIENT
  Age: 54 Year
  Sex: Female

DRUGS (5)
  1. HUMIRA [Suspect]
     Indication: COLITIS ULCERATIVE
     Dosage: LOADING DOSE
     Dates: start: 20130327
  2. HUMIRA [Suspect]
     Dates: start: 20130410, end: 20130424
  3. HUMIRA [Suspect]
     Dates: start: 20130424
  4. LEVOXYL [Concomitant]
     Indication: HYPOTHYROIDISM
  5. UNKNOWN SUPPLEMENTS [Concomitant]
     Indication: PRODUCT USED FOR UNKNOWN INDICATION

REACTIONS (4)
  - Drug effect incomplete [Not Recovered/Not Resolved]
  - Diarrhoea [Recovering/Resolving]
  - Flatulence [Recovering/Resolving]
  - Muscle spasms [Recovering/Resolving]
